FAERS Safety Report 7080110-3 (Version None)
Quarter: 2010Q4

REPORT INFORMATION
  Report Type: 
  Country: None (occurrence: None)
  Receive Date: 20101102
  Receipt Date: 20101019
  Transmission Date: 20110411
  Serious: Yes (Hospitalization)
  Sender: FDA-Public Use
  Company Number: PHHY2010US69972

PATIENT
  Sex: Female
  Weight: 44 kg

DRUGS (5)
  1. TASIGNA [Suspect]
     Indication: CHRONIC MYELOID LEUKAEMIA
     Dosage: 400 MG IN MORNING
     Route: 048
     Dates: start: 20100528, end: 20100628
  2. TASIGNA [Suspect]
     Dosage: 200 MG IN MORNING
     Route: 048
     Dates: start: 20100528, end: 20100628
  3. VITAMIN D [Concomitant]
     Indication: OSTEOPENIA
     Dosage: 400 UNK, DAILY
     Route: 048
     Dates: start: 20100116, end: 20100628
  4. BACTRIM [Concomitant]
     Indication: PROPHYLAXIS
     Dosage: 80 MG, BID TWO DAY A WEEK
     Route: 048
     Dates: start: 20100116, end: 20100628
  5. ONDANSETRON [Concomitant]
     Dosage: 4 MG
     Route: 048
     Dates: start: 20100116, end: 20100628

REACTIONS (2)
  - BLAST CELL CRISIS [None]
  - MALIGNANT NEOPLASM PROGRESSION [None]
